FAERS Safety Report 13944988 (Version 1)
Quarter: 2017Q3

REPORT INFORMATION
  Report Type: Spontaneous
  Country: US (occurrence: US)
  Receive Date: 20170907
  Receipt Date: 20170907
  Transmission Date: 20171128
  Serious: No
  Sender: FDA-Public Use
  Company Number: US-ROCHE-1369184

PATIENT
  Sex: Male

DRUGS (3)
  1. RITUXAN [Suspect]
     Active Substance: RITUXIMAB
     Indication: MONOCLONAL GAMMOPATHY
     Route: 065
  2. RITUXAN [Suspect]
     Active Substance: RITUXIMAB
     Dosage: DOSE INCREASED
     Route: 065
  3. PREDNISOLON [Concomitant]
     Active Substance: PREDNISOLONE

REACTIONS (1)
  - Disease progression [Unknown]
